FAERS Safety Report 21104677 (Version 1)
Quarter: 2022Q3

REPORT INFORMATION
  Report Type: Spontaneous
  Country: US (occurrence: US)
  Receive Date: 20220720
  Receipt Date: 20220720
  Transmission Date: 20221026
  Serious: No
  Sender: FDA-Public Use
  Company Number: USA--2022-US-000069

PATIENT
  Age: 65 Year
  Sex: Female

DRUGS (2)
  1. DORZOLAMIDE HYDROCHLORIDE\TIMOLOL MALEATE [Suspect]
     Active Substance: DORZOLAMIDE HYDROCHLORIDE\TIMOLOL MALEATE
     Dosage: SEVERAL DROPS OQ BID
     Dates: start: 20210929, end: 20211110
  2. Xalatan 0.005% ophthalmic solution [Concomitant]

REACTIONS (3)
  - Eye irritation [Recovered/Resolved]
  - Product delivery mechanism issue [Recovered/Resolved]
  - Medication error [Recovered/Resolved]

NARRATIVE: CASE EVENT DATE: 20210929
